FAERS Safety Report 4740757-3 (Version None)
Quarter: 2005Q3

REPORT INFORMATION
  Report Type: 
  Country: None (occurrence: None)
  Receive Date: 20050810
  Receipt Date: 20050803
  Transmission Date: 20060218
  Serious: Yes (Hospitalization)
  Sender: FDA-Public Use
  Company Number: US-JNJFOC-20050300145

PATIENT
  Age: 64 Year
  Sex: Female

DRUGS (8)
  1. DITROPAN XL [Suspect]
     Route: 048
  2. DITROPAN XL [Suspect]
     Route: 048
  3. DITROPAN XL [Suspect]
     Route: 048
  4. DITROPAN XL [Suspect]
     Route: 048
  5. ANTIINFLAMMATORY [Concomitant]
  6. DAYPRO [Concomitant]
  7. PROZAC [Concomitant]
  8. METAMUCIL [Concomitant]

REACTIONS (3)
  - DYSURIA [None]
  - INTESTINAL OBSTRUCTION [None]
  - VISUAL DISTURBANCE [None]
